FAERS Safety Report 8203771-1 (Version None)
Quarter: 2012Q1

REPORT INFORMATION
  Report Type: 
  Country: None (occurrence: None)
  Receive Date: 20120313
  Receipt Date: 20120229
  Transmission Date: 20120608
  Serious: Yes (Hospitalization, Other)
  Sender: FDA-Public Use
  Company Number: US-BAYER-2011-038804

PATIENT
  Age: 39 Year
  Sex: Female
  Weight: 106.58 kg

DRUGS (5)
  1. YASMIN [Suspect]
     Indication: CONTRACEPTION
     Dosage: UNK
     Dates: start: 20041001, end: 20090415
  2. LEXAPRO [Concomitant]
     Indication: DEPRESSION
     Dosage: 10 MG, QD
     Dates: start: 20060101, end: 20090101
  3. ZOMIG [Concomitant]
  4. ZYRTEC [Concomitant]
  5. WELLBUTRIN [Concomitant]
     Dosage: UNK UNK, QD

REACTIONS (9)
  - INJURY [None]
  - VENOUS THROMBOSIS [None]
  - ANHEDONIA [None]
  - GALLBLADDER DISORDER [None]
  - DEPRESSION [None]
  - PAIN [None]
  - ANXIETY [None]
  - PANCREATITIS [None]
  - HYSTERECTOMY [None]
